FAERS Safety Report 9473126 (Version 2)
Quarter: 2014Q2

REPORT INFORMATION
  Report Type: Spontaneous
  Country: US (occurrence: US)
  Receive Date: 20130823
  Receipt Date: 20140515
  Transmission Date: 20141212
  Serious: Yes (Other)
  Sender: FDA-Public Use
  Company Number: US-BRISTOL-MYERS SQUIBB COMPANY-17470576

PATIENT
  Age: 76 Year
  Sex: Male
  Weight: 84.35 kg

DRUGS (10)
  1. SPRYCEL (CML) TABS 100 MG [Suspect]
     Indication: CHRONIC MYELOID LEUKAEMIA
     Dosage: 12JUN13-7APR2014 100MG ONCE DAILY
     Route: 048
     Dates: start: 20130204, end: 20140407
  2. ALTACE [Concomitant]
  3. ASA [Concomitant]
  4. BENADRYL [Concomitant]
  5. CALCITRATE [Concomitant]
  6. COUMADIN [Concomitant]
  7. LIPITOR [Concomitant]
  8. LOPRESSOR [Concomitant]
  9. POTASSIUM [Concomitant]
  10. TYLENOL [Concomitant]

REACTIONS (3)
  - Arterial occlusive disease [Unknown]
  - Nasopharyngitis [Unknown]
  - Pain in extremity [Unknown]
